FAERS Safety Report 9179276 (Version 1)
Quarter: 2013Q1

REPORT INFORMATION
  Report Type: Spontaneous
  Country: IT (occurrence: IT)
  Receive Date: 20130321
  Receipt Date: 20130321
  Transmission Date: 20140127
  Serious: Yes (Hospitalization)
  Sender: FDA-Public Use
  Company Number: IT-TEVA-391883ISR

PATIENT
  Age: 81 Year
  Sex: Male

DRUGS (8)
  1. METFORMIN [Suspect]
     Indication: DIABETES MELLITUS
     Dosage: 1000 MILLIGRAM DAILY;
     Route: 048
     Dates: start: 20100101
  2. ASCRIPTIN [Concomitant]
  3. CORDARONE [Concomitant]
     Indication: ATRIAL FIBRILLATION
  4. NORVASC [Concomitant]
     Indication: HYPERTENSION
  5. OLPREZIDE [Concomitant]
     Indication: HYPERTENSION
     Dosage: OLMESARTAN MEDOXOMIL 20MG/HYDROCHLOROTIAZIDE 25MG
  6. TOTALIP [Concomitant]
  7. OMNIC [Concomitant]
     Dosage: TAMSULOSINE HYDROCHLORIDE, MODIFIED RELEASE RIGID CAPSULES
  8. LANSOPRAZOLO [Concomitant]

REACTIONS (1)
  - Renal failure acute [Recovered/Resolved]
